FAERS Safety Report 14343606 (Version 9)
Quarter: 2018Q2

REPORT INFORMATION
  Report Type: Spontaneous
  Country: ES (occurrence: ES)
  Receive Date: 20180102
  Receipt Date: 20180607
  Transmission Date: 20180711
  Serious: Yes (Other)
  Sender: FDA-Public Use
  Company Number: ES-PFIZER INC-2017552836

PATIENT
  Age: 64 Year
  Sex: Female

DRUGS (1)
  1. ZOLEDRONIC ACID [Suspect]
     Active Substance: ZOLEDRONIC ACID
     Indication: METASTASES TO BONE
     Dosage: 4 MG, CYCLIC(EVERY 3 MONTHS)
     Route: 042
     Dates: start: 2006, end: 2008

REACTIONS (2)
  - Actinomycosis [Recovered/Resolved]
  - Osteonecrosis of jaw [Recovered/Resolved]
